FAERS Safety Report 9288018 (Version 2)
Quarter: 2013Q2

REPORT INFORMATION
  Report Type: Spontaneous
  Country: FR (occurrence: None)
  Receive Date: 20130506
  Receipt Date: 20130522
  Transmission Date: 20140414
  Serious: Yes (Other)
  Sender: FDA-Public Use
  Company Number: FR-ZYDUS-001101

PATIENT
  Age: 76 Year
  Sex: Male

DRUGS (2)
  1. METFORMIN (METFORMIN) [Suspect]
  2. VILDAGLIPTIN [Suspect]

REACTIONS (1)
  - Pemphigoid [None]
